FAERS Safety Report 7046863-5 (Version None)
Quarter: 2010Q3

REPORT INFORMATION
  Report Type: 
  Country: None (occurrence: None)
  Receive Date: 20100902
  Receipt Date: 20090619
  Transmission Date: 20110219
  Serious: Yes (Other)
  Sender: FDA-Public Use
  Company Number: 09-005

PATIENT

DRUGS (1)
  1. DOG FENNEL 1:1000 W/V [Suspect]
     Indication: HYPERSENSITIVITY
     Dosage: SKIN TEST

REACTIONS (1)
  - NONSPECIFIC REACTION [None]
